FAERS Safety Report 4639665-8 (Version None)
Quarter: 2005Q2

REPORT INFORMATION
  Report Type: 
  Country: None (occurrence: None)
  Receive Date: 20050415
  Receipt Date: 20050330
  Transmission Date: 20051028
  Serious: Yes (Hospitalization)
  Sender: FDA-Public Use
  Company Number: GXKR2005DE00855

PATIENT
  Age: 1 Year
  Sex: Male

DRUGS (1)
  1. BISOPROLOL SANDOZ (NGX) (BISOPROLOL) FILM-COATED TABLET, 5MG [Suspect]
     Dosage: 5 MG, QD
     Dates: start: 20050228

REACTIONS (2)
  - ARTHRALGIA [None]
  - ERYTHEMA NODOSUM [None]
